FAERS Safety Report 10475253 (Version 1)
Quarter: 2014Q3

REPORT INFORMATION
  Report Type: Spontaneous
  Country: US (occurrence: None)
  Receive Date: 20140924
  Receipt Date: 20140924
  Transmission Date: 20150326
  Serious: Yes (Life-Threatening, Hospitalization)
  Sender: FDA-Public Use
  Company Number: None

PATIENT
  Age: 63 Year
  Sex: Male
  Weight: 81.6 kg

DRUGS (1)
  1. PACLITAXEL 6 MG/ML (45 MG TOTAL) [Suspect]
     Active Substance: PACLITAXEL
     Indication: LUNG NEOPLASM MALIGNANT
     Dosage: 45 MG, WEEKLY, IVPB?8/22/14 (NO REACTION)?
     Dates: start: 20140822

REACTIONS (1)
  - Unresponsive to stimuli [None]

NARRATIVE: CASE EVENT DATE: 20140911
